FAERS Safety Report 10468044 (Version 1)
Quarter: 2014Q3

REPORT INFORMATION
  Report Type: Spontaneous
  Country: US (occurrence: US)
  Receive Date: 20140922
  Receipt Date: 20140922
  Transmission Date: 20150326
  Serious: Yes (Other)
  Sender: FDA-Public Use
  Company Number: PHHY2014US122077

PATIENT
  Age: 22 Year
  Sex: Male

DRUGS (7)
  1. NAPROXEN. [Suspect]
     Active Substance: NAPROXEN
  2. MONTELUKAST [Concomitant]
     Active Substance: MONTELUKAST SODIUM
     Route: 045
  3. PREDNISONE. [Concomitant]
     Active Substance: PREDNISONE
  4. ACETYLSALICYLIC ACID [Suspect]
     Active Substance: ASPIRIN
     Dosage: 81 MG, UNK
     Route: 048
  5. BUDESONIDE W/FORMOTEROL [Concomitant]
  6. IBUPROFEN. [Suspect]
     Active Substance: IBUPROFEN
  7. ACETYLSALICYLIC ACID [Suspect]
     Active Substance: ASPIRIN
     Dosage: 81 MG, UNK
     Route: 048

REACTIONS (3)
  - Aspirin-exacerbated respiratory disease [Unknown]
  - Eye disorder [Unknown]
  - Nasal disorder [Unknown]
